FAERS Safety Report 5795977-6 (Version None)
Quarter: 2008Q2

REPORT INFORMATION
  Report Type: 
  Country: None (occurrence: None)
  Receive Date: 20080626
  Receipt Date: 20080611
  Transmission Date: 20081010
  Serious: Yes (Death)
  Sender: FDA-Public Use
  Company Number: 2008S1010056

PATIENT
  Sex: Female

DRUGS (18)
  1. ESTRADIOL [Suspect]
  2. PREMARIN [Suspect]
  3. AYGESTIN [Suspect]
  4. PREMPHASE 14/14 [Suspect]
  5. CYCRIN [Suspect]
  6. PREMPRO [Suspect]
  7. ESTROPIPATE [Suspect]
  8. ACTIVELLA [Suspect]
  9. PROVERA [Suspect]
  10. ESTINYL [Suspect]
  11. CENESTIN [Suspect]
  12. FEMHRT [Suspect]
  13. ESTRACE [Suspect]
  14. ESTRATEST [Suspect]
  15. PROMETRIUM [Suspect]
  16. PREFEST [Suspect]
  17. ESTROGENIC SUBSTANCE [Suspect]
  18. MEDROXYPROGESTERONE [Suspect]

REACTIONS (1)
  - BREAST CANCER FEMALE [None]
